FAERS Safety Report 22173361 (Version 2)
Quarter: 2023Q2

REPORT INFORMATION
  Report Type: Spontaneous
  Country: JP (occurrence: JP)
  Receive Date: 20230404
  Receipt Date: 20230421
  Transmission Date: 20230721
  Serious: Yes (Hospitalization)
  Sender: FDA-Public Use
  Company Number: JP-TEVA-2023-JP-2873442

PATIENT
  Age: 5 Decade
  Sex: Female

DRUGS (3)
  1. PREDNISOLONE [Interacting]
     Active Substance: PREDNISOLONE
     Indication: Polychondritis
     Dosage: 45 MILLIGRAM DAILY;
     Route: 065
  2. DAPSONE [Interacting]
     Active Substance: DAPSONE
     Indication: Polychondritis
     Dosage: 100 MILLIGRAM DAILY;
     Route: 065
  3. METHOTREXATE [Concomitant]
     Active Substance: METHOTREXATE
     Indication: Polychondritis
     Route: 065

REACTIONS (2)
  - Methaemoglobinaemia [Recovered/Resolved]
  - Drug interaction [Unknown]
